FAERS Safety Report 7812020-5 (Version None)
Quarter: 2011Q4

REPORT INFORMATION
  Report Type: 
  Country: None (occurrence: None)
  Receive Date: 20111013
  Receipt Date: 20110928
  Transmission Date: 20120403
  Serious: Yes (Other)
  Sender: FDA-Public Use
  Company Number: AU-ROCHE-GNE323718

PATIENT
  Sex: Female

DRUGS (2)
  1. LUCENTIS [Suspect]
     Dates: start: 20110801
  2. LUCENTIS [Suspect]
     Indication: MACULAR DEGENERATION
     Dosage: 0.05 ML, UNKNOWN
     Route: 050
     Dates: start: 20100701

REACTIONS (5)
  - DETACHMENT OF RETINAL PIGMENT EPITHELIUM [None]
  - SCOTOMA [None]
  - VISUAL ACUITY REDUCED [None]
  - RETINAL OEDEMA [None]
  - VITREOUS FLOATERS [None]
